FAERS Safety Report 9916080 (Version 1)
Quarter: 2014Q1

REPORT INFORMATION
  Report Type: Spontaneous
  Country: US (occurrence: None)
  Receive Date: 20140219
  Receipt Date: 20140219
  Transmission Date: 20141002
  Serious: Yes (Death)
  Sender: FDA-Public Use
  Company Number: UTC-044641

PATIENT
  Age: 76 Year
  Sex: Female
  Weight: 47.7 kg

DRUGS (1)
  1. REMODULIN (5 MILLIGRAM/MILLILITERS, INJECTION FOR INFUSION) (TREPROSTINIL SODIUM) [Suspect]
     Indication: COR PULMONALE CHRONIC
     Dosage: 87.84 UG/KG (0.061 UG/KG, 1 IN 1 MIN). INTRAVENOUS
     Route: 042
     Dates: start: 20120726

REACTIONS (1)
  - Death [None]
